FAERS Safety Report 10852885 (Version 2)
Quarter: 2015Q1

REPORT INFORMATION
  Report Type: Spontaneous
  Country: DE (occurrence: DE)
  Receive Date: 20150223
  Receipt Date: 20150319
  Transmission Date: 20150721
  Serious: Yes (Hospitalization)
  Sender: FDA-Public Use
  Company Number: DE-AUROBINDO-AUR-APL-2015-01523

PATIENT
  Age: 34 Year
  Sex: Male
  Weight: 81 kg

DRUGS (5)
  1. CLOZAPIN [Suspect]
     Active Substance: CLOZAPINE
     Indication: SCHIZOPHRENIA
     Dosage: 100 MG, TWO TIMES A DAY
     Route: 065
     Dates: start: 20140911, end: 20150113
  2. MIRTAZAPINE 30MG [Suspect]
     Active Substance: MIRTAZAPINE
     Indication: SLEEP DISORDER
     Dosage: 30 MG, ONCE A DAY
     Route: 048
     Dates: start: 20140813, end: 20150113
  3. RISPERIDONE 1MG [Suspect]
     Active Substance: RISPERIDONE
     Indication: SCHIZOPHRENIA
     Dosage: 1 MG, ONCE A DAY
     Route: 065
     Dates: start: 20140813, end: 20150113
  4. PIRENZEPIN [Concomitant]
     Active Substance: PIRENZEPINE
     Indication: SALIVARY HYPERSECRETION
     Dosage: 50 MG, ONCE A DAY
     Route: 048
     Dates: start: 20140919, end: 20150113
  5. CLOZAPIN [Suspect]
     Active Substance: CLOZAPINE
     Dosage: 150 MG, TWO TIMES A DAY
     Route: 065
     Dates: start: 20140911, end: 20150113

REACTIONS (2)
  - Hyperthermia [Recovering/Resolving]
  - Rhabdomyolysis [Recovering/Resolving]

NARRATIVE: CASE EVENT DATE: 20150113
